FAERS Safety Report 4837677-2 (Version None)
Quarter: 2005Q4

REPORT INFORMATION
  Report Type: 
  Country: None (occurrence: None)
  Receive Date: 20051123
  Receipt Date: 20051123
  Transmission Date: 20060501
  Serious: No
  Sender: FDA-Public Use
  Company Number: None

PATIENT
  Sex: Male
  Weight: 3.1 kg

DRUGS (1)
  1. CORTROSYN [Suspect]
     Indication: ADRENOCORTICAL INSUFFICIENCY CHRONIC
     Dosage: 9.3 MCG, ONE TIME, IV
     Route: 042
     Dates: start: 20051115

REACTIONS (2)
  - OXYGEN SATURATION DECREASED [None]
  - PROCEDURAL COMPLICATION [None]
